FAERS Safety Report 20474332 (Version 2)
Quarter: 2022Q1

REPORT INFORMATION
  Report Type: Report from Study
  Country: US (occurrence: US)
  Receive Date: 20220215
  Receipt Date: 20220224
  Transmission Date: 20220424
  Serious: Yes (Other)
  Sender: FDA-Public Use
  Company Number: US-GSKCCFUS-Case-01279366_AE-74666

PATIENT
  Age: 74 Year
  Sex: Male

DRUGS (1)
  1. BELANTAMAB MAFODOTIN [Suspect]
     Active Substance: BELANTAMAB MAFODOTIN
     Indication: Product used for unknown indication
     Dosage: UNK
     Dates: start: 202112

REACTIONS (11)
  - Corneal neovascularisation [Unknown]
  - Vision blurred [Unknown]
  - Superficial injury of eye [Unknown]
  - COVID-19 [Recovered/Resolved]
  - Keratopathy [Unknown]
  - Visual acuity reduced [Recovering/Resolving]
  - Dry eye [Recovering/Resolving]
  - Foreign body sensation in eyes [Recovering/Resolving]
  - Lacrimation decreased [Unknown]
  - Eye disorder [Unknown]
  - Product dose omission issue [Unknown]

NARRATIVE: CASE EVENT DATE: 20220101
